FAERS Safety Report 18730498 (Version 1)
Quarter: 2021Q1

REPORT INFORMATION
  Report Type: Spontaneous
  Country: CA (occurrence: CA)
  Receive Date: 20210112
  Receipt Date: 20210112
  Transmission Date: 20210419
  Serious: Yes (Other)
  Sender: FDA-Public Use
  Company Number: CA-PFIZER INC-2021013136

PATIENT

DRUGS (8)
  1. BARICITINIB. [Suspect]
     Active Substance: BARICITINIB
     Dosage: UNK
  2. HYDROXYCHLOROQUINE [Suspect]
     Active Substance: HYDROXYCHLOROQUINE
     Dosage: 200 MG
  3. RINVOQ [Suspect]
     Active Substance: UPADACITINIB
     Dosage: 15 MG, 1X/DAY
     Route: 048
  4. METHOTREXATE SODIUM. [Suspect]
     Active Substance: METHOTREXATE SODIUM
     Dosage: 20 MG
     Route: 058
  5. FOLIC ACID. [Concomitant]
     Active Substance: FOLIC ACID
  6. METHOTREXATE SODIUM. [Suspect]
     Active Substance: METHOTREXATE SODIUM
     Dosage: UNK
  7. HUMIRA [Suspect]
     Active Substance: ADALIMUMAB
     Route: 058
  8. ENBREL [Concomitant]
     Active Substance: ETANERCEPT

REACTIONS (7)
  - Osteoarthritis [Unknown]
  - Gait disturbance [Unknown]
  - Latent tuberculosis [Unknown]
  - Rash [Unknown]
  - Therapeutic product effect decreased [Unknown]
  - Pain [Unknown]
  - Rheumatoid arthritis [Unknown]
